FAERS Safety Report 9846474 (Version 1)
Quarter: 2014Q1

REPORT INFORMATION
  Report Type: Spontaneous
  Country: DE (occurrence: DE)
  Receive Date: 20140127
  Receipt Date: 20140127
  Transmission Date: 20141002
  Serious: Yes (Hospitalization, Other)
  Sender: FDA-Public Use
  Company Number: DE-009507513-1401USA007874

PATIENT
  Age: 58 Year
  Sex: Male

DRUGS (12)
  1. PEGINTRON [Suspect]
     Dosage: UNK
  2. RIBAVIRIN [Suspect]
     Dosage: UNK
  3. PROGRAF [Suspect]
     Indication: PROPHYLAXIS AGAINST TRANSPLANT REJECTION
     Dosage: 3 MILLIGRAMS, DAILY, (2/1MG)
     Route: 048
     Dates: start: 20080611
  4. CELLCEPT [Suspect]
     Dosage: UNK
     Dates: end: 200903
  5. CELLCEPT [Suspect]
     Dosage: UNK
     Dates: start: 200903
  6. SILYMARIN [Suspect]
     Dosage: UNK
  7. URSOFALK [Concomitant]
  8. PANTOZOL [Concomitant]
  9. TORSEMIDE [Concomitant]
  10. SUMMAVIT [Concomitant]
  11. SPIRONOLACTONE [Concomitant]
  12. ARANESP (DARBEPOETIN ALFA) [Concomitant]

REACTIONS (8)
  - Pancytopenia [Recovered/Resolved]
  - Pancytopenia [Unknown]
  - Packed red blood cell transfusion [Unknown]
  - Pancytopenia [Unknown]
  - Transfusion [Unknown]
  - Pancytopenia [Not Recovered/Not Resolved]
  - Hepatic function abnormal [Not Recovered/Not Resolved]
  - Anaemia [Unknown]
